FAERS Safety Report 18770194 (Version 3)
Quarter: 2021Q1

REPORT INFORMATION
  Report Type: Report from Study
  Country: AR (occurrence: AR)
  Receive Date: 20210121
  Receipt Date: 20210225
  Transmission Date: 20210419
  Serious: Yes (Other)
  Sender: FDA-Public Use
  Company Number: AR-ASTRAZENECA-2021A008827

PATIENT
  Age: 19069 Day
  Sex: Female

DRUGS (1)
  1. FASENRA [Suspect]
     Active Substance: BENRALIZUMAB
     Indication: ASTHMA
     Route: 058
     Dates: start: 20201217

REACTIONS (5)
  - Rhinitis [Recovering/Resolving]
  - Dyspnoea [Recovering/Resolving]
  - Asthmatic crisis [Not Recovered/Not Resolved]
  - Sneezing [Recovering/Resolving]
  - Cough [Recovering/Resolving]

NARRATIVE: CASE EVENT DATE: 20210111
